FAERS Safety Report 4414259-8 (Version None)
Quarter: 2004Q3

REPORT INFORMATION
  Report Type: 
  Country: None (occurrence: None)
  Receive Date: 20040729
  Receipt Date: 20040715
  Transmission Date: 20050211
  Serious: Yes (Hospitalization)
  Sender: FDA-Public Use
  Company Number: 2004224942NL

PATIENT
  Age: 48 Year
  Sex: Female

DRUGS (2)
  1. CAMPTOSAR [Suspect]
     Indication: RECTAL CANCER METASTATIC
     Dosage: 350 MG/M2, CYCLIC, EVERY 3 WEEKS, IV
     Route: 042
     Dates: start: 20040713, end: 20040713
  2. ONDANSETRON HCL [Concomitant]

REACTIONS (2)
  - DYSARTHRIA [None]
  - TONGUE DISORDER [None]
